FAERS Safety Report 7500130-1 (Version None)
Quarter: 2011Q2

REPORT INFORMATION
  Report Type: 
  Country: None (occurrence: None)
  Receive Date: 20110524
  Receipt Date: 20110520
  Transmission Date: 20111010
  Serious: Yes (Death)
  Sender: FDA-Public Use
  Company Number: JP-ASTRAZENECA-2011SE20684

PATIENT
  Age: 76 Year
  Sex: Male
  Weight: 52 kg

DRUGS (5)
  1. OMEPRAZOLE [Suspect]
     Route: 048
     Dates: start: 20110311, end: 20110318
  2. PLAVIX [Concomitant]
     Route: 048
     Dates: start: 20100724, end: 20110318
  3. CARVEDILOL [Concomitant]
     Route: 048
     Dates: start: 20100806, end: 20110318
  4. ADALAT [Concomitant]
     Route: 048
     Dates: start: 20100724, end: 20110318
  5. ASPIRIN [Concomitant]
     Route: 048
     Dates: start: 20070525, end: 20110318

REACTIONS (1)
  - GRANULOCYTOPENIA [None]
